FAERS Safety Report 8896683 (Version 1)
Quarter: 2012Q4

REPORT INFORMATION
  Report Type: 
  Country: US (occurrence: US)
  Receive Date: 20121108
  Receipt Date: 20121108
  Transmission Date: 20130627
  Serious: No
  Sender: FDA-Public Use
  Company Number: US-AMGEN-USASP2012028163

PATIENT
  Age: 54 Year
  Sex: Male
  Weight: 104.31 kg

DRUGS (9)
  1. ENBREL [Suspect]
     Indication: RHEUMATOID ARTHRITIS
     Dosage: 50 mg, qwk
  2. HUMIRA [Concomitant]
  3. METHOTREXATE [Concomitant]
     Dosage: 2.5 mg, UNK
     Route: 048
  4. FOLIC ACID [Concomitant]
     Route: 048
  5. LEUCOVORIN CA [Concomitant]
     Dosage: 5 mg, UNK
  6. SYNTHROID [Concomitant]
     Dosage: 25 mug, UNK
     Route: 048
  7. PREDNISONE [Concomitant]
     Dosage: 1 mg, UNK
     Route: 048
  8. ACYCLOVIR                          /00587301/ [Concomitant]
     Dosage: 200 mg, UNK
     Route: 048
  9. LISINOPRIL [Concomitant]
     Dosage: 2.5 mg, UNK
     Route: 048

REACTIONS (1)
  - Drug ineffective [Unknown]
